FAERS Safety Report 9136635 (Version 1)
Quarter: 2013Q1

REPORT INFORMATION
  Report Type: Spontaneous
  Country: US (occurrence: US)
  Receive Date: 20130304
  Receipt Date: 20130304
  Transmission Date: 20140127
  Serious: No
  Sender: FDA-Public Use
  Company Number: US-ABBOTT-12P-163-0975389-00

PATIENT
  Age: 63 Year
  Sex: Male

DRUGS (6)
  1. ANDROGEL 1% [Suspect]
     Indication: BLOOD TESTOSTERONE DECREASED
     Dosage: 1 PUMP DAILY
     Dates: end: 20120101
  2. ANDROGEL 1% [Suspect]
     Dosage: 1 PUMPS DAILY
     Dates: start: 20120514, end: 20120529
  3. ANDROGEL 1% [Suspect]
     Dosage: 2 PUMPS DAILY
     Dates: start: 20120530, end: 20120609
  4. ANDROGEL 1% [Suspect]
     Dosage: 3 PUMPS DAILY
     Dates: start: 20120710, end: 20120811
  5. ANDROGEL 1.62% [Suspect]
     Indication: BLOOD TESTOSTERONE DECREASED
     Dosage: 2 PUMPS DAILY
     Dates: start: 20120812
  6. TPN [Concomitant]
     Indication: MALABSORPTION
     Route: 042

REACTIONS (4)
  - Weight decreased [Not Recovered/Not Resolved]
  - Blood testosterone decreased [Unknown]
  - Thyroxine decreased [Unknown]
  - Haemoglobin decreased [Recovered/Resolved]
